FAERS Safety Report 15752322 (Version 1)
Quarter: 2018Q4

REPORT INFORMATION
  Report Type: Spontaneous
  Country: US (occurrence: US)
  Receive Date: 20181221
  Receipt Date: 20181221
  Transmission Date: 20190205
  Serious: Yes (Disabling, Other)
  Sender: FDA-Public Use
  Company Number: US-TEVA-2018-US-990328

PATIENT
  Sex: Female

DRUGS (1)
  1. LOSARTAN. [Suspect]
     Active Substance: LOSARTAN
     Dosage: 100/25 FOR SEVERAL YEARS NOW
     Route: 065

REACTIONS (2)
  - Breast cancer stage III [Unknown]
  - Disability [Not Recovered/Not Resolved]
